FAERS Safety Report 9999343 (Version 1)
Quarter: 2014Q1

REPORT INFORMATION
  Report Type: Spontaneous
  Country: US (occurrence: None)
  Receive Date: 20140311
  Receipt Date: 20140311
  Transmission Date: 20141002
  Serious: Yes (Hospitalization)
  Sender: FDA-Public Use
  Company Number: None

PATIENT
  Age: 53 Year
  Sex: Female
  Weight: 80.29 kg

DRUGS (9)
  1. WARFARIN [Suspect]
     Indication: DEEP VEIN THROMBOSIS
     Dosage: 2 TABLETS QD ORAL
     Route: 048
  2. WARFARIN [Suspect]
     Indication: PULMONARY EMBOLISM
     Dosage: 2 TABLETS QD ORAL
     Route: 048
  3. FUROSEMIDE [Concomitant]
  4. NORCO [Concomitant]
  5. INSULIN GLARGINE [Concomitant]
  6. PIOGLITAZONE [Concomitant]
  7. POTASSIUM CHLORIDE [Concomitant]
  8. SIMVASTATIN [Concomitant]
  9. ASPERCREME [Concomitant]

REACTIONS (1)
  - Haemorrhagic diathesis [None]
